FAERS Safety Report 17134020 (Version 27)
Quarter: 2022Q4

REPORT INFORMATION
  Report Type: Spontaneous
  Country: GB (occurrence: GB)
  Receive Date: 20191210
  Receipt Date: 20221206
  Transmission Date: 20230112
  Serious: Yes (Hospitalization, Other)
  Sender: FDA-Public Use
  Company Number: GB-LICONSA-2019-006355

PATIENT
  Age: 7 Year
  Sex: Male

DRUGS (80)
  1. ALFUZOSIN [Suspect]
     Active Substance: ALFUZOSIN
     Indication: Product used for unknown indication
     Dosage: 10 MILLIGRAM, ONCE A DAY
     Route: 065
  2. ALFUZOSIN [Suspect]
     Active Substance: ALFUZOSIN
     Dosage: 10 MILLIGRAM, ONCE A DAY,(10 MILLIGRAM, STRENGTH: 10 MG)
     Route: 065
  3. ALFUZOSIN [Suspect]
     Active Substance: ALFUZOSIN
     Dosage: 10 MILLIGRAM, ONCE A DAY,(10 MILLIGRAM, STRENGTH: 10 MG)
     Route: 065
  4. ALFUZOSIN [Suspect]
     Active Substance: ALFUZOSIN
     Dosage: 10 MILLIGRAM, ONCE A DAY,(10 MILLIGRAM, STRENGTH: 10 MG)
     Route: 065
  5. ALFUZOSIN [Suspect]
     Active Substance: ALFUZOSIN
     Dosage: 10 MILLIGRAM, ONCE A DAY,(10 MILLIGRAM, STRENGTH: 10 MG)
     Route: 065
  6. ALFUZOSIN [Suspect]
     Active Substance: ALFUZOSIN
     Dosage: 10 MILLIGRAM, ONCE A DAY,(10 MILLIGRAM, STRENGTH: 10 MG)
     Route: 065
  7. ALFUZOSIN [Suspect]
     Active Substance: ALFUZOSIN
     Dosage: 10 MILLIGRAM, ONCE A DAY,(10 MILLIGRAM, STRENGTH: 10 MG)
     Route: 065
  8. ALFUZOSIN [Suspect]
     Active Substance: ALFUZOSIN
     Dosage: 10 MILLIGRAM, ONCE A DAY,(10 MILLIGRAM, STRENGTH: 10 MG)
     Route: 065
  9. ALFUZOSIN [Suspect]
     Active Substance: ALFUZOSIN
     Dosage: 10 MILLIGRAM, ONCE A DAY,(10 MILLIGRAM, STRENGTH: 10 MG)
     Route: 065
  10. ALFUZOSIN [Suspect]
     Active Substance: ALFUZOSIN
     Dosage: 10 MILLIGRAM, ONCE A DAY,(10 MILLIGRAM, STRENGTH: 10 MG)
     Route: 065
  11. ALFUZOSIN [Suspect]
     Active Substance: ALFUZOSIN
     Dosage: 10 MILLIGRAM, ONCE A DAY,(10 MILLIGRAM, STRENGTH: 10 MG)
     Route: 065
  12. ALFUZOSIN [Suspect]
     Active Substance: ALFUZOSIN
     Indication: Product used for unknown indication
     Dosage: 10 MILLIGRAM, ONCE A DAY
     Route: 065
  13. ALFUZOSIN [Suspect]
     Active Substance: ALFUZOSIN
     Indication: Product used for unknown indication
     Dosage: 10 MILLIGRAM, ONCE A DAY
     Route: 065
  14. ALFUZOSIN [Suspect]
     Active Substance: ALFUZOSIN
     Dosage: 10 MILLIGRAM, ONCE A DAY
     Route: 065
  15. ALFUZOSIN [Suspect]
     Active Substance: ALFUZOSIN
     Dosage: 10 MILLIGRAM
     Route: 065
  16. ALFUZOSIN [Suspect]
     Active Substance: ALFUZOSIN
     Dosage: 1 DOSAGE FORM, ONCE A DAY
     Route: 065
  17. ALFUZOSIN [Suspect]
     Active Substance: ALFUZOSIN
     Indication: Product used for unknown indication
     Dosage: 1 DOSAGE FORM, ONCE A DAY
     Route: 065
  18. ALFUZOSIN [Suspect]
     Active Substance: ALFUZOSIN
     Dosage: 10 MILLIGRAM, ONCE A DAY
     Route: 065
  19. BISOPROLOL [Suspect]
     Active Substance: BISOPROLOL
     Indication: Product used for unknown indication
     Dosage: 2.5 MILLIGRAM, ONCE A DAY
     Route: 065
  20. BISOPROLOL [Suspect]
     Active Substance: BISOPROLOL
     Dosage: 2.5 MILLIGRAM, ONCE A DAY,(2.5 MILLIGRAM, STRENGTH: 2.5 MG,DRUG TAKEN BEYOND EXPIRY DATE, MEDICATION
     Route: 065
  21. BISOPROLOL [Suspect]
     Active Substance: BISOPROLOL
     Dosage: 2.5 MILLIGRAM, ONCE A DAY,(2.5 MILLIGRAM, STRENGTH: 2.5 MG,DRUG TAKEN BEYOND EXPIRY DATE, MEDICATION
     Route: 065
  22. BISOPROLOL [Suspect]
     Active Substance: BISOPROLOL
     Dosage: 2.5 MILLIGRAM, ONCE A DAY,(2.5 MILLIGRAM, STRENGTH: 2.5 MG,DRUG TAKEN BEYOND EXPIRY DATE, MEDICATION
     Route: 065
  23. BISOPROLOL [Suspect]
     Active Substance: BISOPROLOL
     Indication: Product used for unknown indication
     Dosage: 2.5 MILLIGRAM, ONCE A DAY
     Route: 065
  24. BISOPROLOL [Suspect]
     Active Substance: BISOPROLOL
     Dosage: 2.5 MILLIGRAM
     Route: 065
  25. BISOPROLOL [Suspect]
     Active Substance: BISOPROLOL
     Dosage: 2.5 MILLIGRAM, ONCE A DAY
     Route: 065
  26. BISOPROLOL [Suspect]
     Active Substance: BISOPROLOL
     Dosage: 2.5 MILLIGRAM
     Route: 065
  27. BISOPROLOL [Suspect]
     Active Substance: BISOPROLOL
     Dosage: 2.5 MILLIGRAM
     Route: 065
  28. DUTASTERIDE [Suspect]
     Active Substance: DUTASTERIDE
     Indication: Product used for unknown indication
     Dosage: 500 MICROGRAM, ONCE A DAY
     Route: 065
  29. DUTASTERIDE [Suspect]
     Active Substance: DUTASTERIDE
     Dosage: 500 MICROGRAM, ONCE A DAY,(STRENGTH: 500 MICROGRAM DOSE: 500 QD)
     Route: 065
  30. DUTASTERIDE [Suspect]
     Active Substance: DUTASTERIDE
     Dosage: 500 MICROGRAM, ONCE A DAY,(STRENGTH: 500 MICROGRAM DOSE: 500 QD)
     Route: 065
  31. DUTASTERIDE [Suspect]
     Active Substance: DUTASTERIDE
     Dosage: 500 MICROGRAM, ONCE A DAY,(STRENGTH: 500 MICROGRAM DOSE: 500 QD)
     Route: 065
  32. DUTASTERIDE [Suspect]
     Active Substance: DUTASTERIDE
     Dosage: 500 MICROGRAM, ONCE A DAY,(STRENGTH: 500 MICROGRAM DOSE: 500 QD)
     Route: 065
  33. DUTASTERIDE [Suspect]
     Active Substance: DUTASTERIDE
     Dosage: 500 MICROGRAM, ONCE A DAY,(STRENGTH: 500 MICROGRAM DOSE: 500 QD)
     Route: 065
  34. DUTASTERIDE [Suspect]
     Active Substance: DUTASTERIDE
     Indication: Product used for unknown indication
     Dosage: 500 GRAM, ONCE A DAY
     Route: 065
  35. DUTASTERIDE [Suspect]
     Active Substance: DUTASTERIDE
     Dosage: 500 MICROGRAM, ONCE A DAY
     Route: 065
  36. DUTASTERIDE [Suspect]
     Active Substance: DUTASTERIDE
     Dosage: 500 MILLIGRAM, ONCE A DAY
     Route: 065
  37. DUTASTERIDE [Suspect]
     Active Substance: DUTASTERIDE
     Dosage: 500 GRAM, ONCE A DAY
     Route: 065
  38. DUTASTERIDE [Suspect]
     Active Substance: DUTASTERIDE
     Dosage: 500 GRAM, ONCE A DAY
     Route: 065
  39. TRAMADOL [Suspect]
     Active Substance: TRAMADOL
     Indication: Product used for unknown indication
     Dosage: 50 MILLIGRAM, ONCE A DAY
     Route: 065
  40. TRAMADOL [Suspect]
     Active Substance: TRAMADOL
     Dosage: 100 MILLIGRAM, ONCE A DAY
     Route: 065
  41. DAPTOMYCIN [Suspect]
     Active Substance: DAPTOMYCIN
     Indication: Bacteraemia
     Dosage: 120 DOSAGE FORM
     Route: 042
  42. DAPTOMYCIN [Suspect]
     Active Substance: DAPTOMYCIN
     Indication: Device related infection
     Dosage: UNK
     Route: 042
  43. DAPTOMYCIN [Suspect]
     Active Substance: DAPTOMYCIN
     Indication: Bacteraemia
     Dosage: UNK
     Route: 042
  44. DAPTOMYCIN [Suspect]
     Active Substance: DAPTOMYCIN
     Indication: Device related infection
     Dosage: UNK
     Route: 042
  45. LANSOPRAZOLE [Suspect]
     Active Substance: LANSOPRAZOLE
     Indication: Product used for unknown indication
     Dosage: 15 MILLIGRAM, ONCE A DAY
     Route: 065
  46. LANSOPRAZOLE [Suspect]
     Active Substance: LANSOPRAZOLE
     Indication: Gastrooesophageal reflux disease
     Dosage: 15 MILLIGRAM, ONCE A DAY
     Route: 065
  47. LANSOPRAZOLE [Suspect]
     Active Substance: LANSOPRAZOLE
     Dosage: 2.5 MILLIGRAM, ONCE A DAY
     Route: 065
  48. LANSOPRAZOLE [Suspect]
     Active Substance: LANSOPRAZOLE
     Indication: Product used for unknown indication
     Dosage: 15 MILLIGRAM, ONCE A DAY
     Route: 065
  49. LANSOPRAZOLE [Suspect]
     Active Substance: LANSOPRAZOLE
     Dosage: 2.5 MILLIGRAM, ONCE A DAY
     Route: 065
  50. LANSOPRAZOLE [Suspect]
     Active Substance: LANSOPRAZOLE
     Dosage: 2.5 MILLIGRAM, ONCE A DAY
     Route: 065
  51. LANSOPRAZOLE [Suspect]
     Active Substance: LANSOPRAZOLE
     Dosage: 2.5 MILLIGRAM, ONCE A DAY
     Route: 065
  52. LANSOPRAZOLE [Suspect]
     Active Substance: LANSOPRAZOLE
     Dosage: 2.5 MILLIGRAM, ONCE A DAY
     Route: 065
  53. LANSOPRAZOLE [Suspect]
     Active Substance: LANSOPRAZOLE
     Dosage: 15 MILLIGRAM, ONCE A DAY
     Route: 065
  54. TRAMADOL [Suspect]
     Active Substance: TRAMADOL
     Indication: Product used for unknown indication
     Dosage: 100 MILLIGRAM, ONCE A DAY
     Route: 065
  55. TRAMADOL [Suspect]
     Active Substance: TRAMADOL
     Dosage: 50 MILLIGRAM, ONCE A DAY
     Route: 065
  56. TRAMADOL [Suspect]
     Active Substance: TRAMADOL
     Dosage: UNK, ONCE A DAY
     Route: 065
  57. TRAMADOL [Suspect]
     Active Substance: TRAMADOL
     Dosage: UNK
     Route: 065
  58. TRAMADOL [Suspect]
     Active Substance: TRAMADOL
     Indication: Product used for unknown indication
     Dosage: 100 MILLIGRAM, ONCE A DAY
     Route: 065
  59. TRAMADOL [Suspect]
     Active Substance: TRAMADOL
     Dosage: 50 MILLIGRAM
     Route: 065
  60. TRAMADOL [Suspect]
     Active Substance: TRAMADOL
     Dosage: 50 MILLIGRAM,(50 MG, STRENGTH: 100 MG)
     Route: 065
  61. TRAMADOL [Suspect]
     Active Substance: TRAMADOL
     Dosage: 50 MILLIGRAM,(50 MG, STRENGTH: 100 MG)
     Route: 065
  62. TRAMADOL [Suspect]
     Active Substance: TRAMADOL
     Dosage: 50 MILLIGRAM,(50 MG, STRENGTH: 100 MG)
     Route: 065
  63. VANCOMYCIN [Suspect]
     Active Substance: VANCOMYCIN
     Indication: Bacteraemia
     Dosage: UNK
     Route: 042
  64. VANCOMYCIN [Suspect]
     Active Substance: VANCOMYCIN
     Indication: Device related infection
     Dosage: UNK,(UNK, DRUG TAKEN BEYOND EXPIRY DATE, MEDICATION ERROR, MISUSE, OFF LABEL USEPOWDER FOR INJECTION
     Route: 042
  65. VANCOMYCIN [Suspect]
     Active Substance: VANCOMYCIN
     Dosage: UNK,(UNK, DRUG TAKEN BEYOND EXPIRY DATE, MEDICATION ERROR, MISUSE, OFF LABEL USEPOWDER FOR INJECTION
     Route: 042
  66. TRAMADOL [Suspect]
     Active Substance: TRAMADOL
     Indication: Product used for unknown indication
     Dosage: 50 MILLIGRAM, ONCE A DAY
     Route: 065
  67. TRAMADOL [Suspect]
     Active Substance: TRAMADOL
     Dosage: 100 MILLIGRAM, ONCE A DAY
     Route: 065
  68. TRAMADOL [Suspect]
     Active Substance: TRAMADOL
     Dosage: 50 MILLIGRAM, ONCE A DAY,(50 MILLIGRAM, STRENGTH : 50 MG,DRUG TAKEN BEYOND EXPIRY DATE, MEDICATION E
     Route: 065
  69. TRAMADOL [Suspect]
     Active Substance: TRAMADOL
     Dosage: 50 MILLIGRAM, ONCE A DAY,(50 MILLIGRAM, STRENGTH : 50 MG,DRUG TAKEN BEYOND EXPIRY DATE, MEDICATION E
     Route: 065
  70. TRAMADOL [Suspect]
     Active Substance: TRAMADOL
     Dosage: 50 MILLIGRAM, ONCE A DAY,(50 MILLIGRAM, STRENGTH : 50 MG,DRUG TAKEN BEYOND EXPIRY DATE, MEDICATION E
     Route: 065
  71. TRAMADOL [Suspect]
     Active Substance: TRAMADOL
     Dosage: 50 MILLIGRAM, ONCE A DAY,(50 MILLIGRAM, STRENGTH : 50 MG,DRUG TAKEN BEYOND EXPIRY DATE, MEDICATION E
     Route: 065
  72. LANSOPRAZOLE [Suspect]
     Active Substance: LANSOPRAZOLE
     Indication: Product used for unknown indication
     Dosage: 2.5 MILLIGRAM, ONCE A DAY
     Route: 065
  73. LANSOPRAZOLE [Suspect]
     Active Substance: LANSOPRAZOLE
     Dosage: 15 MILLIGRAM, ONCE A DAY
     Route: 065
  74. DAPTOMYCIN [Suspect]
     Active Substance: DAPTOMYCIN
     Indication: Device related infection
     Dosage: UNK
     Route: 065
  75. DAPTOMYCIN [Suspect]
     Active Substance: DAPTOMYCIN
     Indication: Bacteraemia
     Dosage: UNK
     Route: 042
  76. DAPTOMYCIN [Suspect]
     Active Substance: DAPTOMYCIN
     Dosage: UNK
     Route: 042
  77. LANSOPRAZOLE [Suspect]
     Active Substance: LANSOPRAZOLE
     Indication: Product used for unknown indication
     Dosage: UNK,(ADDITIONAL INFO: DRUG TAKEN BEYOND EXPIRY DATE, MEDICATION ERROR, MISUSEUNK, STRENGTH: 2.5 MG)
     Route: 065
  78. LANSOPRAZOLE [Suspect]
     Active Substance: LANSOPRAZOLE
     Dosage: UNK,(ADDITIONAL INFO: DRUG TAKEN BEYOND EXPIRY DATE, MEDICATION ERROR, MISUSEUNK, STRENGTH: 2.5 MG)
     Route: 065
  79. LANSOPRAZOLE [Suspect]
     Active Substance: LANSOPRAZOLE
     Dosage: UNK,(ADDITIONAL INFO: DRUG TAKEN BEYOND EXPIRY DATE, MEDICATION ERROR, MISUSEUNK, STRENGTH: 2.5 MG)
     Route: 065
  80. LINEZOLID [Concomitant]
     Active Substance: LINEZOLID
     Indication: Product used for unknown indication
     Dosage: UNK
     Route: 065

REACTIONS (16)
  - Malaise [Unknown]
  - Lower respiratory tract infection [Unknown]
  - Antimicrobial susceptibility test resistant [Unknown]
  - Minimum inhibitory concentration [Unknown]
  - Drug dispensed to wrong patient [Unknown]
  - Drug ineffective for unapproved indication [Unknown]
  - Expired product administered [Unknown]
  - Off label use [Unknown]
  - Product administration error [Unknown]
  - Product dispensing error [Unknown]
  - Product storage error [Unknown]
  - Wrong patient received product [Unknown]
  - Wrong product administered [Unknown]
  - Therapeutic response delayed [Unknown]
  - Therapy non-responder [Unknown]
  - Intentional product misuse [Unknown]
